FAERS Safety Report 18936610 (Version 8)
Quarter: 2021Q3

REPORT INFORMATION
  Report Type: Other
  Country: ES (occurrence: ES)
  Receive Date: 20210225
  Receipt Date: 20210917
  Transmission Date: 20211014
  Serious: Yes (Other)
  Sender: FDA-Public Use
  Company Number: ES-ROCHE-2769158

PATIENT
  Age: 13 Year
  Sex: Female

DRUGS (8)
  1. RISDIPLAM. [Suspect]
     Active Substance: RISDIPLAM
     Route: 048
     Dates: start: 20210202, end: 20210218
  2. SPINRAZA [Suspect]
     Active Substance: NUSINERSEN
     Indication: SPINAL MUSCULAR ATROPHY
     Dosage: 24 MONTHS OF TREATMENT
     Route: 065
     Dates: start: 201805, end: 202005
  3. RIFAMPICIN [Concomitant]
     Active Substance: RIFAMPIN
     Route: 048
  4. SPINRAZA [Suspect]
     Active Substance: NUSINERSEN
     Dosage: RESTARTED 3 AND A HALF MONTHS AFTER WITHDRAWAL OF RISDIPLAM. CURRENTLY 2 DOSES.
     Route: 065
  5. SALBUTAMOL [Concomitant]
     Active Substance: ALBUTEROL
     Indication: SPINAL MUSCULAR ATROPHY
     Route: 048
  6. CLOXACILLIN [Concomitant]
     Active Substance: CLOXACILLIN
     Route: 042
  7. RISDIPLAM. [Suspect]
     Active Substance: RISDIPLAM
     Indication: SPINAL MUSCULAR ATROPHY
     Dosage: 6.6 ML / DAY
     Route: 048
     Dates: start: 20201203, end: 20210118
  8. CEFUROXIME. [Concomitant]
     Active Substance: CEFUROXIME

REACTIONS (2)
  - Cutaneous vasculitis [Recovering/Resolving]
  - Upper respiratory tract infection [Unknown]

NARRATIVE: CASE EVENT DATE: 20210113
